FAERS Safety Report 25268323 (Version 3)
Quarter: 2025Q2

REPORT INFORMATION
  Report Type: Spontaneous
  Country: US (occurrence: US)
  Receive Date: 20250505
  Receipt Date: 20250604
  Transmission Date: 20250716
  Serious: No
  Sender: PFIZER
  Company Number: US-PFIZER INC-202500086911

PATIENT
  Age: 11 Year
  Sex: Male
  Weight: 49.887 kg

DRUGS (1)
  1. GENOTROPIN [Suspect]
     Active Substance: SOMATROPIN
     Indication: Growth hormone deficiency
     Dosage: 1.6, 1X/DAY

REACTIONS (2)
  - Device use error [Unknown]
  - Device defective [Unknown]
